FAERS Safety Report 6252314-0 (Version None)
Quarter: 2009Q2

REPORT INFORMATION
  Report Type: 
  Country: None (occurrence: None)
  Receive Date: 20090629
  Receipt Date: 20090629
  Transmission Date: 20091009
  Serious: Yes (Life-Threatening, Hospitalization)
  Sender: FDA-Public Use
  Company Number: None

PATIENT
  Sex: Male
  Weight: 63.5036 kg

DRUGS (4)
  1. OSMOPREP [Suspect]
     Indication: BOWEL PREPARATION
     Dosage: 32 TABLETS OVER 2 DAYS 4 EVERY 15 MINUTES ORAL
     Route: 048
     Dates: start: 20090521
  2. OSMOPREP [Suspect]
     Indication: COLONOSCOPY
     Dosage: 32 TABLETS OVER 2 DAYS 4 EVERY 15 MINUTES ORAL
     Route: 048
     Dates: start: 20090521
  3. OSMOPREP [Suspect]
     Indication: BOWEL PREPARATION
     Dosage: 32 TABLETS OVER 2 DAYS 4 EVERY 15 MINUTES ORAL
     Route: 048
     Dates: start: 20090522
  4. OSMOPREP [Suspect]
     Indication: COLONOSCOPY
     Dosage: 32 TABLETS OVER 2 DAYS 4 EVERY 15 MINUTES ORAL
     Route: 048
     Dates: start: 20090522

REACTIONS (2)
  - BLOOD SODIUM DECREASED [None]
  - CONVULSION [None]
